FAERS Safety Report 15376344 (Version 1)
Quarter: 2018Q3

REPORT INFORMATION
  Report Type: Spontaneous
  Country: CL (occurrence: CL)
  Receive Date: 20180912
  Receipt Date: 20180912
  Transmission Date: 20181010
  Serious: Yes (Other)
  Sender: FDA-Public Use
  Company Number: CL-009507513-1809CHL004280

PATIENT
  Age: 7 Year
  Sex: Female

DRUGS (1)
  1. SINGULAIR [Suspect]
     Active Substance: MONTELUKAST SODIUM
     Dosage: 4 MG, UNK
     Route: 048
     Dates: start: 2014, end: 201808

REACTIONS (6)
  - Haematochezia [Not Recovered/Not Resolved]
  - Colitis [Unknown]
  - Lower gastrointestinal haemorrhage [Unknown]
  - Mucous stools [Unknown]
  - Faeces soft [Unknown]
  - Rectal haemorrhage [Unknown]

NARRATIVE: CASE EVENT DATE: 2018
